FAERS Safety Report 24535765 (Version 1)
Quarter: 2024Q4

REPORT INFORMATION
  Report Type: Spontaneous
  Country: US (occurrence: None)
  Receive Date: 20241022
  Receipt Date: 20241022
  Transmission Date: 20250115
  Serious: Yes (Disabling)
  Sender: Public
  Company Number: None

PATIENT
  Age: 97 Year
  Sex: Female
  Weight: 57.15 kg

DRUGS (2)
  1. XARELTO [Suspect]
     Active Substance: RIVAROXABAN
     Indication: Myocardial infarction
  2. PLAVIX [Suspect]
     Active Substance: CLOPIDOGREL BISULFATE

REACTIONS (3)
  - Tic [None]
  - Screaming [None]
  - Dyskinesia [None]

NARRATIVE: CASE EVENT DATE: 20180501
